FAERS Safety Report 24417005 (Version 1)
Quarter: 2024Q4

REPORT INFORMATION
  Report Type: Spontaneous
  Country: US (occurrence: US)
  Receive Date: 20241009
  Receipt Date: 20241009
  Transmission Date: 20250115
  Serious: Yes (Other)
  Sender: TEVA
  Company Number: US-TEVA-VS-3249824

PATIENT
  Age: 68 Year
  Sex: Female

DRUGS (1)
  1. CINQAIR [Suspect]
     Active Substance: RESLIZUMAB
     Indication: Asthma
     Dosage: VIALS
     Route: 042
     Dates: start: 20240220

REACTIONS (4)
  - Catheterisation cardiac [Unknown]
  - Drain placement [Recovered/Resolved]
  - Vascular pseudoaneurysm [Unknown]
  - Feeling abnormal [Unknown]

NARRATIVE: CASE EVENT DATE: 20240101
